FAERS Safety Report 4642875-7 (Version None)
Quarter: 2005Q2

REPORT INFORMATION
  Report Type: 
  Country: None (occurrence: None)
  Receive Date: 20050422
  Receipt Date: 20050415
  Transmission Date: 20051028
  Serious: Yes (Hospitalization, Other)
  Sender: FDA-Public Use
  Company Number: PHRM2005FR01299

PATIENT
  Age: 23 Year
  Sex: Female

DRUGS (3)
  1. OTHER LOCAL ANESTHETICS [Concomitant]
     Indication: CAESAREAN SECTION
     Dosage: UNK, ONCE/SINGLE
     Dates: start: 20040416, end: 20040416
  2. METHERGINE [Suspect]
     Route: 048
     Dates: start: 20030101, end: 20030101
  3. CYTOTEC [Suspect]
     Dosage: TOTAL OF 30 TABLETS
     Route: 048
     Dates: start: 20030101, end: 20030101

REACTIONS (5)
  - CAESAREAN SECTION [None]
  - DRUG EXPOSURE DURING PREGNANCY [None]
  - FOETAL GROWTH RETARDATION [None]
  - HYPERTENSION [None]
  - METRORRHAGIA [None]
